FAERS Safety Report 9253886 (Version 4)
Quarter: 2013Q2

REPORT INFORMATION
  Report Type: Report from Study
  Country: PE (occurrence: PE)
  Receive Date: 20130425
  Receipt Date: 20130508
  Transmission Date: 20140414
  Serious: Yes (Death, Hospitalization)
  Sender: FDA-Public Use
  Company Number: PE-ROCHE-1216278

PATIENT
  Age: 73 Year
  Sex: Female
  Weight: 73 kg

DRUGS (7)
  1. TRASTUZUMAB [Suspect]
     Indication: HER-2 POSITIVE BREAST CANCER
     Dosage: LOADING DOSE.
     Route: 042
     Dates: start: 20130213
  2. TRASTUZUMAB [Suspect]
     Dosage: MAINTENANCE DOSE. LAST DOSE PRIOR TO SAE ON 03/APR/2013
     Route: 042
     Dates: end: 20130418
  3. PACLITAXEL [Suspect]
     Indication: HER-2 POSITIVE BREAST CANCER
     Dosage: LAST DOSE PRIOR TO SAE ON 20/MAR/2013
     Route: 042
     Dates: start: 20130213
  4. ATENOLOL [Concomitant]
     Indication: HYPERTENSION
     Route: 065
     Dates: start: 201004
  5. LACTULOSE [Concomitant]
     Indication: CONSTIPATION
     Route: 065
     Dates: start: 1998
  6. PERTUZUMAB [Suspect]
     Indication: HER-2 POSITIVE BREAST CANCER
     Dosage: LOADING DOSE AS PER PROTOCOL.
     Route: 042
     Dates: start: 20130213
  7. PERTUZUMAB [Suspect]
     Dosage: MAINTENANCE DOSE. LAST DOSE PRIOR TO SAE ON 03/APR/2013
     Route: 042
     Dates: end: 20130418

REACTIONS (3)
  - Upper gastrointestinal haemorrhage [Fatal]
  - Hepatic failure [Fatal]
  - Sepsis [Recovering/Resolving]
